FAERS Safety Report 7274777-4 (Version None)
Quarter: 2011Q1

REPORT INFORMATION
  Report Type: 
  Country: None (occurrence: None)
  Receive Date: 20110128
  Receipt Date: 20110112
  Transmission Date: 20110831
  Serious: Yes (Hospitalization)
  Sender: FDA-Public Use
  Company Number: DSA_44676_2011

PATIENT
  Age: 55 Year
  Sex: Male

DRUGS (7)
  1. ENALAPRIL MALEATE [Suspect]
     Indication: HYPERTENSION
     Dosage: 20 MG QD
     Dates: start: 20080101
  2. DIAZEPAM [Concomitant]
  3. LOPERAMIDE [Concomitant]
  4. XATRAL [Concomitant]
  5. PROPRANOLOL HYDROCHLORIDE [Concomitant]
  6. PANTESTONE /00103107 [Concomitant]
  7. LERCANIDIPINE [Suspect]
     Indication: HYPERTENSION
     Dosage: 5 MG QD
     Dates: start: 20101207

REACTIONS (3)
  - HYPOAESTHESIA ORAL [None]
  - ORAL DISCOMFORT [None]
  - LIP OEDEMA [None]
